FAERS Safety Report 9063346 (Version 1)
Quarter: 2013Q1

REPORT INFORMATION
  Report Type: Report from Study
  Country: US (occurrence: US)
  Receive Date: 20130131
  Receipt Date: 20130131
  Transmission Date: 20140127
  Serious: No
  Sender: FDA-Public Use
  Company Number: US-ABBOTT-12P-163-1009584-00

PATIENT
  Age: 44 Year
  Sex: Female

DRUGS (5)
  1. HUMIRA [Suspect]
     Indication: COLITIS ULCERATIVE
     Route: 058
     Dates: start: 20121031
  2. APRISO [Concomitant]
     Indication: COLITIS ULCERATIVE
     Dosage: PILLS
  3. CYMBALTA [Concomitant]
     Indication: DEPRESSION
  4. XANAX [Concomitant]
     Indication: ANXIETY
  5. IRON [Concomitant]
     Indication: HAEMATOCRIT DECREASED

REACTIONS (1)
  - Injection site pain [Not Recovered/Not Resolved]
